FAERS Safety Report 17750331 (Version 1)
Quarter: 2020Q2

REPORT INFORMATION
  Report Type: Spontaneous
  Country: US (occurrence: US)
  Receive Date: 20200505
  Receipt Date: 20200505
  Transmission Date: 20200714
  Serious: Yes (Other)
  Sender: FDA-Public Use
  Company Number: None

PATIENT
  Age: 78 Year
  Sex: Male
  Weight: 76.5 kg

DRUGS (12)
  1. ALBUTEROL. [Concomitant]
     Active Substance: ALBUTEROL
  2. ASPIRIN. [Concomitant]
     Active Substance: ASPIRIN
  3. EFFIENT [Concomitant]
     Active Substance: PRASUGREL HYDROCHLORIDE
  4. LYRICA [Concomitant]
     Active Substance: PREGABALIN
  5. CAPECITABINE. [Suspect]
     Active Substance: CAPECITABINE
     Indication: COLON CANCER
     Route: 048
     Dates: start: 20200423
  6. ISOSORBIDE. [Concomitant]
     Active Substance: ISOSORBIDE
  7. MAGNESIUM [Concomitant]
     Active Substance: MAGNESIUM
  8. AMLODIPINE [Concomitant]
     Active Substance: AMLODIPINE BESYLATE
  9. METOPROLOL. [Concomitant]
     Active Substance: METOPROLOL
  10. VITAMIN D [Concomitant]
     Active Substance: VITAMIN D NOS
  11. ROSUVASTATIN. [Concomitant]
     Active Substance: ROSUVASTATIN
  12. MECLIZINE [Concomitant]
     Active Substance: MECLIZINE HYDROCHLORIDE

REACTIONS (2)
  - Diarrhoea [None]
  - Hypoaesthesia [None]
